FAERS Safety Report 24067082 (Version 3)
Quarter: 2024Q3

REPORT INFORMATION
  Report Type: Spontaneous
  Country: AU (occurrence: AU)
  Receive Date: 20240709
  Receipt Date: 20240910
  Transmission Date: 20241016
  Serious: Yes (Hospitalization)
  Sender: ROCHE
  Company Number: AU-ROCHE-10000010943

PATIENT
  Age: 33 Year
  Sex: Male

DRUGS (9)
  1. EVRYSDI [Suspect]
     Active Substance: RISDIPLAM
     Indication: Spinal muscular atrophy
     Route: 048
     Dates: start: 2024
  2. PIPERACILLIN AND TAZOBACTAM [Concomitant]
     Active Substance: PIPERACILLIN SODIUM\TAZOBACTAM SODIUM
  3. THIAMINE [Concomitant]
     Active Substance: THIAMINE
  4. ASCORBIC ACID [ASCORBIC ACID;GLUCOSE] [Concomitant]
  5. CARBOXYMETHYLCELLULOSE [Concomitant]
     Active Substance: CARBOXYMETHYLCELLULOSE
  6. ISOTRETINOIN [Concomitant]
     Active Substance: ISOTRETINOIN
  7. ALBUTEROL [Concomitant]
     Active Substance: ALBUTEROL
  8. VALPROATE SODIUM [Concomitant]
     Active Substance: VALPROATE SODIUM
  9. IRON [Concomitant]
     Active Substance: IRON

REACTIONS (8)
  - Pneumonia [Recovering/Resolving]
  - COVID-19 [Recovering/Resolving]
  - Treatment noncompliance [Unknown]
  - Staphylococcal infection [Recovering/Resolving]
  - Empyema [Unknown]
  - Malnutrition [Unknown]
  - Acute kidney injury [Unknown]
  - Pleural effusion [Unknown]

NARRATIVE: CASE EVENT DATE: 20240101
